FAERS Safety Report 8080506-7 (Version None)
Quarter: 2012Q1

REPORT INFORMATION
  Report Type: 
  Country: None (occurrence: None)
  Receive Date: 20120130
  Receipt Date: 20120116
  Transmission Date: 20120608
  Serious: Yes (Hospitalization)
  Sender: FDA-Public Use
  Company Number: US-PFIZER INC-2012012804

PATIENT
  Sex: Male
  Weight: 2.4 kg

DRUGS (20)
  1. LIDOCAINE HYDROCHLORIDE [Interacting]
     Dosage: 2 BOLUSES OF 1 MG/KG
     Route: 040
  2. AMIODARONE HCL [Interacting]
     Dosage: 1 MG/KG/DOSE
     Route: 040
  3. ESMOLOL [Concomitant]
     Dosage: 66 UG/KG/MIN
  4. PHENYTOIN [Interacting]
     Dosage: 5 MG/KG
     Route: 040
  5. ESMOLOL [Concomitant]
     Dosage: 250 UG/KG/MIN
  6. CALCIUM [Concomitant]
     Dosage: 10 MG/KG PER DOSE
  7. LIDOCAINE HYDROCHLORIDE [Suspect]
     Dosage: 2 DOSES 1MG/KG
  8. LIDOCAINE HYDROCHLORIDE [Interacting]
     Dosage: 1 MG/KG
     Route: 040
  9. PHENYTOIN [Interacting]
     Dosage: 8 MG/KG
     Route: 040
  10. LIDOCAINE HYDROCHLORIDE [Interacting]
     Dosage: 40 UG/KG/MIN
  11. ESMOLOL [Concomitant]
     Dosage: 500 UG/KG/MIN
  12. MILRINONE [Concomitant]
     Dosage: 0.2 UG/KG/MIN
  13. LIDOCAINE HYDROCHLORIDE [Interacting]
     Dosage: 10 UG/KG/MIN
  14. LIDOCAINE HYDROCHLORIDE [Interacting]
     Dosage: 50 UG/KG/MIN
  15. AMIODARONE HCL [Interacting]
     Dosage: 11 DOSES AT 3 MG/DOSE
  16. AMIODARONE HCL [Interacting]
     Dosage: 3 BOLUSES OF 1 MG/KG
     Route: 040
  17. POTASSIUM [Concomitant]
     Dosage: 1 MEQ/KG PER DOSE
  18. ESMOLOL [Concomitant]
     Dosage: 30 UG/KG/MIN
  19. ESMOLOL [Concomitant]
     Dosage: 200 UG/KG/MIN
  20. MAGNESIUM [Concomitant]
     Dosage: 25 MG/KG PER DOSE

REACTIONS (3)
  - TOXICITY TO VARIOUS AGENTS [None]
  - DRUG INTERACTION [None]
  - NEUROTOXICITY [None]
